FAERS Safety Report 15878196 (Version 1)
Quarter: 2019Q1

REPORT INFORMATION
  Report Type: Spontaneous
  Country: US (occurrence: US)
  Receive Date: 20190128
  Receipt Date: 20190128
  Transmission Date: 20190417
  Serious: No
  Sender: FDA-Public Use
  Company Number: US-PFIZER INC-2019036191

PATIENT
  Age: 74 Year
  Sex: Female
  Weight: 78.91 kg

DRUGS (1)
  1. IBRANCE [Suspect]
     Active Substance: PALBOCICLIB
     Indication: BREAST CANCER FEMALE
     Dosage: 125 MG, CYCLIC (DAY(D) 1- D21 EVERY (Q) 28D)
     Route: 048
     Dates: start: 2017

REACTIONS (2)
  - Vision blurred [Unknown]
  - Lethargy [Unknown]
